FAERS Safety Report 7510658-6 (Version None)
Quarter: 2011Q2

REPORT INFORMATION
  Report Type: 
  Country: None (occurrence: None)
  Receive Date: 20110530
  Receipt Date: 20110516
  Transmission Date: 20111010
  Serious: Yes (Life-Threatening, Hospitalization)
  Sender: FDA-Public Use
  Company Number: GB-RANBAXY-2011R1-44753

PATIENT
  Age: 75 Year
  Sex: Male

DRUGS (2)
  1. AMPICILLIN SODIUM/SULBACTAM SODIUM [Suspect]
     Indication: LOWER RESPIRATORY TRACT INFECTION
     Dosage: 625 MG, UNK
     Route: 048
     Dates: start: 20110314
  2. CHLORAMPHENICOL [Suspect]
     Indication: CONJUNCTIVITIS
     Dosage: UNK
     Route: 061
     Dates: start: 20110314

REACTIONS (1)
  - STEVENS-JOHNSON SYNDROME [None]
